FAERS Safety Report 13679873 (Version 2)
Quarter: 2017Q3

REPORT INFORMATION
  Report Type: Spontaneous
  Country: DE (occurrence: DE)
  Receive Date: 20170622
  Receipt Date: 20170725
  Transmission Date: 20171127
  Serious: No
  Sender: FDA-Public Use
  Company Number: DE-BIOGEN-2017BV000057

PATIENT
  Age: 13 Year
  Sex: Male
  Weight: 42 kg

DRUGS (6)
  1. ELOCTA [Suspect]
     Active Substance: EFMOROCTOCOG ALFA
     Indication: IMMUNE TOLERANCE INDUCTION
     Dosage: STARTED AT 4PM
     Route: 065
     Dates: start: 20170412
  2. ELOCTA [Suspect]
     Active Substance: EFMOROCTOCOG ALFA
     Route: 065
  3. ELOCTA [Suspect]
     Active Substance: EFMOROCTOCOG ALFA
     Dosage: AFTER ANOTHER 8 HOURS WAS GIVEN THIS DOSE AGAIN
     Route: 065
     Dates: start: 20170413
  4. ELOCTA [Suspect]
     Active Substance: EFMOROCTOCOG ALFA
     Dosage: THEREAFTER DOSING WAS CHANGED TO THIS DOSE
     Route: 065
     Dates: start: 20170413
  5. ELOCTA [Suspect]
     Active Substance: EFMOROCTOCOG ALFA
     Route: 065
  6. ELOCTA [Suspect]
     Active Substance: EFMOROCTOCOG ALFA
     Indication: FACTOR VIII DEFICIENCY
     Dosage: AFTER 8 HOURS WAS GIVEN THIS DOSE
     Route: 065
     Dates: start: 20170413

REACTIONS (2)
  - Immune tolerance induction [Not Recovered/Not Resolved]
  - Off label use [Not Recovered/Not Resolved]

NARRATIVE: CASE EVENT DATE: 20170412
